FAERS Safety Report 8272348-4 (Version None)
Quarter: 2012Q1

REPORT INFORMATION
  Report Type: 
  Country: None (occurrence: None)
  Receive Date: 20120314
  Receipt Date: 20100809
  Transmission Date: 20120608
  Serious: No
  Sender: FDA-Public Use
  Company Number: PHHY2010US45417

PATIENT
  Age: 55 Year
  Sex: Female

DRUGS (5)
  1. FANAPT [Suspect]
     Indication: SCHIZOAFFECTIVE DISORDER
     Dosage: 16 MG DAILY, ORAL
     Route: 048
     Dates: start: 20100608, end: 20100707
  2. AMBIEN CR [Concomitant]
  3. LUVOX [Concomitant]
  4. DESIPRAMINE HCL [Concomitant]
  5. LITHIUM CARBONATE [Concomitant]

REACTIONS (1)
  - FEELING ABNORMAL [None]
